FAERS Safety Report 5338268-X (Version None)
Quarter: 2007Q2

REPORT INFORMATION
  Report Type: 
  Country: None (occurrence: None)
  Receive Date: 20070405
  Receipt Date: 20061120
  Transmission Date: 20071010
  Serious: No
  Sender: FDA-Public Use
  Company Number: US200611003856

PATIENT
  Age: 53 Year
  Sex: Female

DRUGS (3)
  1. CYMBALTA [Suspect]
     Dosage: ORAL
     Route: 048
     Dates: start: 20061101
  2. PREGABALIN (PREGABALIN) [Concomitant]
  3. MUSCLE RELAXANTS [Concomitant]

REACTIONS (2)
  - COMMUNICATION DISORDER [None]
  - SPEECH DISORDER [None]
